FAERS Safety Report 8619136-4 (Version None)
Quarter: 2012Q3

REPORT INFORMATION
  Report Type: 
  Country: None (occurrence: None)
  Receive Date: 20120824
  Receipt Date: 20120822
  Transmission Date: 20120928
  Serious: Yes (Death, Other)
  Sender: FDA-Public Use
  Company Number: PHHY2012NL072384

PATIENT
  Age: 43 Year
  Sex: Female

DRUGS (3)
  1. CYCLOSPORINE [Suspect]
     Indication: RENAL TRANSPLANT
  2. PREDNISONE TAB [Concomitant]
  3. AZATHIOPRINE SODIUM [Suspect]
     Indication: RENAL TRANSPLANT

REACTIONS (2)
  - POST TRANSPLANT LYMPHOPROLIFERATIVE DISORDER [None]
  - GINGIVAL HYPERPLASIA [None]
